FAERS Safety Report 8589919-8 (Version None)
Quarter: 2012Q3

REPORT INFORMATION
  Report Type: 
  Country: None (occurrence: None)
  Receive Date: 20120813
  Receipt Date: 20120808
  Transmission Date: 20120928
  Serious: Yes (Hospitalization)
  Sender: FDA-Public Use
  Company Number: PHHY2012CH069199

PATIENT
  Age: 18 Year
  Sex: Female

DRUGS (3)
  1. POTIGA [Suspect]
     Dosage: 400 MG, UNK
     Route: 048
     Dates: start: 20110914, end: 20111010
  2. LAMICTAL [Suspect]
     Dosage: 500 MG, DAILY
     Route: 048
  3. TRILEPTAL [Suspect]
     Dosage: 900 MG, DAILY
     Route: 048

REACTIONS (4)
  - MAJOR DEPRESSION [None]
  - HALLUCINATION [None]
  - SUICIDAL IDEATION [None]
  - SOMNOLENCE [None]
